FAERS Safety Report 6443526-1 (Version None)
Quarter: 2009Q4

REPORT INFORMATION
  Report Type: 
  Country: None (occurrence: None)
  Receive Date: 20091117
  Receipt Date: 20091109
  Transmission Date: 20100525
  Serious: Yes (Disabling, Other)
  Sender: FDA-Public Use
  Company Number: NO-PFIZER INC-2009284032

PATIENT
  Age: 52 Year
  Sex: Female

DRUGS (2)
  1. CHAMPIX [Suspect]
     Indication: SMOKING CESSATION THERAPY
     Dosage: RECOMMENDED DOSING REGIMEN
     Route: 048
     Dates: start: 20090801, end: 20090928
  2. PAROXETINE HCL [Concomitant]
     Indication: SOCIAL PHOBIA
     Dosage: 20 MG, 1X/DAY
     Dates: start: 20060101

REACTIONS (2)
  - FLATULENCE [None]
  - HAEMATOCHEZIA [None]
